FAERS Safety Report 5969750-X (Version None)
Quarter: 2008Q4

REPORT INFORMATION
  Report Type: 
  Country: None (occurrence: None)
  Receive Date: 20081126
  Receipt Date: 20080930
  Transmission Date: 20090506
  Serious: No
  Sender: FDA-Public Use
  Company Number: US-ABBOTT-08P-163-0478025-00

PATIENT
  Sex: Male

DRUGS (5)
  1. SIMCOR [Suspect]
     Indication: BLOOD CHOLESTEROL INCREASED
     Dosage: 1-500/20 MG AT BEDTIME
     Route: 048
     Dates: start: 20080901
  2. SIMCOR [Suspect]
     Indication: BLOOD TRIGLYCERIDES
  3. UNKNOWN THYROID MED [Concomitant]
     Indication: DRUG USE FOR UNKNOWN INDICATION
     Route: 048
  4. ACETYLSALICYLIC ACID SRT [Concomitant]
     Indication: DRUG USE FOR UNKNOWN INDICATION
     Route: 048
  5. UNKNOWN TESTOSTERONE MEDICATION [Concomitant]
     Indication: BLOOD TESTOSTERONE
     Route: 048

REACTIONS (1)
  - FEELING HOT [None]
